FAERS Safety Report 19377177 (Version 1)
Quarter: 2021Q2

REPORT INFORMATION
  Report Type: Spontaneous
  Country: JP (occurrence: JP)
  Receive Date: 20210604
  Receipt Date: 20210604
  Transmission Date: 20210717
  Serious: Yes (Other)
  Sender: FDA-Public Use
  Company Number: JP-PFIZER INC-2021603692

PATIENT
  Age: 50 Year
  Sex: Male

DRUGS (1)
  1. INFLIXIMAB 100MG PFIZER [Suspect]
     Active Substance: INFLIXIMAB
     Dosage: UNK
     Route: 042
     Dates: start: 20190509

REACTIONS (1)
  - Colon cancer [Unknown]
